FAERS Safety Report 5596749-8 (Version None)
Quarter: 2008Q1

REPORT INFORMATION
  Report Type: 
  Country: None (occurrence: None)
  Receive Date: 20080118
  Receipt Date: 20080109
  Transmission Date: 20080703
  Serious: Yes (Other)
  Sender: FDA-Public Use
  Company Number: US-PFIZER INC-2008003009

PATIENT
  Sex: Male

DRUGS (2)
  1. SILDENAFIL (PAH) [Suspect]
  2. BOSENTAN [Suspect]

REACTIONS (2)
  - UVEITIS [None]
  - VITREOUS HAEMORRHAGE [None]
